FAERS Safety Report 24984843 (Version 2)
Quarter: 2025Q3

REPORT INFORMATION
  Report Type: Report from Study
  Country: US (occurrence: US)
  Receive Date: 20250219
  Receipt Date: 20250803
  Transmission Date: 20251020
  Serious: Yes (Hospitalization, Other)
  Sender: ALEXION PHARMACEUTICALS
  Company Number: US-AstraZeneca-CH-00808220A

PATIENT
  Sex: Male

DRUGS (1)
  1. OSIMERTINIB [Suspect]
     Active Substance: OSIMERTINIB
     Indication: Lung neoplasm malignant
     Dates: start: 20240626

REACTIONS (5)
  - Nephropathy toxic [Unknown]
  - Balance disorder [Unknown]
  - Decreased appetite [Unknown]
  - Product dose omission issue [Unknown]
  - Insomnia [Unknown]
